FAERS Safety Report 7308642-0 (Version None)
Quarter: 2011Q1

REPORT INFORMATION
  Report Type: 
  Country: None (occurrence: None)
  Receive Date: 20110211
  Receipt Date: 20110205
  Transmission Date: 20110831
  Serious: Yes (Death)
  Sender: FDA-Public Use
  Company Number: DSA_44896_2011

PATIENT
  Age: 56 Year
  Sex: Female

DRUGS (1)
  1. XENAZINE [Suspect]
     Indication: HUNTINGTON'S DISEASE
     Dosage: (6.25 MG TID ORAL)
     Route: 048
     Dates: start: 20100626, end: 20101227

REACTIONS (1)
  - DEATH [None]
